FAERS Safety Report 5841733-X (Version None)
Quarter: 2008Q3

REPORT INFORMATION
  Report Type: 
  Country: None (occurrence: None)
  Receive Date: 20080812
  Receipt Date: 20080731
  Transmission Date: 20090109
  Serious: Yes (Hospitalization, Other)
  Sender: FDA-Public Use
  Company Number: US-CVT-080049

PATIENT

DRUGS (23)
  1. RANEXA [Suspect]
     Indication: ANGINA PECTORIS
     Dosage: 500 MG, BID
     Route: 048
     Dates: start: 20080313, end: 20080326
  2. DULCOLAX [Concomitant]
  3. SINGULAIR [Concomitant]
  4. PREDNISONE                         /00044701/ [Concomitant]
  5. NITROGLYCERIN [Concomitant]
     Dosage: UNK, QD
  6. SYNTHROID [Concomitant]
     Dosage: 0.125 MG, QD
  7. LIPITOR                            /01326101/ [Concomitant]
     Dosage: 20 MG, QD
  8. ADVAIR DISKUS 100/50 [Concomitant]
  9. PERCOCET [Concomitant]
  10. EFFEXOR [Concomitant]
     Dosage: 25 MG, QD
  11. ASPIRIN [Concomitant]
     Dosage: 325 MG, QD
  12. VIGAMOX [Concomitant]
     Dosage: UNK, UNK
     Route: 047
  13. ACULAR [Concomitant]
     Dosage: UNK, UNK
     Route: 047
  14. TOBRADEX [Concomitant]
     Dosage: UNK, QID
     Route: 047
  15. MIRAPEX [Concomitant]
     Dosage: 0.25 MG, QD
  16. ZYLOPRIM [Concomitant]
     Dosage: 100 MG, QD
  17. TYLENOL [Concomitant]
     Dosage: UNK, PRN
  18. BROVANA [Concomitant]
     Dosage: 15 MCG, BID
  19. ZOFRAN [Concomitant]
     Dosage: UNK, PRN
  20. PROTONIX                           /01263201/ [Concomitant]
  21. SENOKOT                            /00142201/ [Concomitant]
  22. NEPHROKAPS [Concomitant]
  23. VITAMIN E                          /00110501/ [Concomitant]

REACTIONS (5)
  - BRONCHITIS [None]
  - CONTUSION [None]
  - DIZZINESS [None]
  - FALL [None]
  - TREMOR [None]
